FAERS Safety Report 5255935-7 (Version None)
Quarter: 2007Q1

REPORT INFORMATION
  Report Type: 
  Country: None (occurrence: None)
  Receive Date: 20061204
  Receipt Date: 20060828
  Transmission Date: 20070707
  Serious: No
  Sender: FDA-Public Use
  Company Number: 2006-BP-10039BP

PATIENT
  Age: 80 Year
  Sex: Female

DRUGS (4)
  1. SPIRIVA [Suspect]
     Indication: CHRONIC OBSTRUCTIVE PULMONARY DISEASE
     Dosage: 18 MCG (18 MCG), IH
     Route: 055
     Dates: start: 20060201
  2. COUMADIN [Concomitant]
  3. VERELAN (VERAPAMIL HYDROCHLORIDE) [Concomitant]
  4. PRIMACOR [Concomitant]

REACTIONS (2)
  - DRY MOUTH [None]
  - SALIVARY GLAND CALCULUS [None]
